FAERS Safety Report 7456668-9 (Version None)
Quarter: 2011Q2

REPORT INFORMATION
  Report Type: 
  Country: None (occurrence: None)
  Receive Date: 20110503
  Receipt Date: 20110429
  Transmission Date: 20111010
  Serious: Yes (Other)
  Sender: FDA-Public Use
  Company Number: US-PFIZER INC-2010116374

PATIENT
  Sex: Female
  Weight: 63.492 kg

DRUGS (4)
  1. CYMBALTA [Suspect]
     Indication: PAIN
     Dosage: UNK
     Route: 048
  2. CYMBALTA [Suspect]
     Indication: DEPRESSION
  3. LYRICA [Suspect]
     Indication: FIBROMYALGIA
     Dosage: 25 MG, 1X/DAY
     Route: 048
  4. LYRICA [Suspect]
     Dosage: 50 MG, 1X/DAY
     Dates: start: 20060101

REACTIONS (4)
  - PAIN [None]
  - VOMITING [None]
  - HYPOAESTHESIA [None]
  - BREAST CANCER FEMALE [None]
